FAERS Safety Report 7928507-0 (Version None)
Quarter: 2011Q4

REPORT INFORMATION
  Report Type: 
  Country: None (occurrence: None)
  Receive Date: 20111118
  Receipt Date: 20111108
  Transmission Date: 20120403
  Serious: Yes (Life-Threatening, Other)
  Sender: FDA-Public Use
  Company Number: CA-ELI_LILLY_AND_COMPANY-CA201111002412

PATIENT
  Age: 16 Year
  Sex: Female
  Weight: 61 kg

DRUGS (3)
  1. STRATTERA [Suspect]
     Dosage: 40 MG, QD
     Route: 048
  2. FLUOXETINE [Concomitant]
     Route: 048
  3. MELATONIN [Concomitant]
     Route: 048

REACTIONS (1)
  - SUPRAVENTRICULAR TACHYCARDIA [None]
